FAERS Safety Report 5878630-X (Version None)
Quarter: 2008Q3

REPORT INFORMATION
  Report Type: 
  Country: None (occurrence: None)
  Receive Date: 20080909
  Receipt Date: 20080902
  Transmission Date: 20090109
  Serious: Yes (Other)
  Sender: FDA-Public Use
  Company Number: CAR-2008-014FUP#1

PATIENT
  Sex: Male

DRUGS (1)
  1. ANDAPSIN (SUCRALFATE) [Suspect]
     Dosage: 1 G TID

REACTIONS (1)
  - POLYNEUROPATHY [None]
